FAERS Safety Report 14634817 (Version 1)
Quarter: 2018Q1

REPORT INFORMATION
  Report Type: Spontaneous
  Country: US (occurrence: US)
  Receive Date: 20180313
  Receipt Date: 20180313
  Transmission Date: 20180509
  Serious: Yes (Death)
  Sender: FDA-Public Use
  Company Number: None

PATIENT
  Sex: Male

DRUGS (6)
  1. PREDNISONE. [Concomitant]
     Active Substance: PREDNISONE
  2. FIRMAGON [Suspect]
     Active Substance: DEGARELIX ACETATE
     Indication: METASTASES TO BONE
     Route: 058
     Dates: start: 201705
  3. XGEVA [Suspect]
     Active Substance: DENOSUMAB
     Route: 058
     Dates: start: 201705
  4. ZYTIGA [Concomitant]
     Active Substance: ABIRATERONE ACETATE
  5. FIRMAGON [Suspect]
     Active Substance: DEGARELIX ACETATE
     Indication: METASTASES TO REPRODUCTIVE ORGAN
     Route: 058
     Dates: start: 201705
  6. FIRMAGON [Suspect]
     Active Substance: DEGARELIX ACETATE
     Indication: PROSTATE CANCER
     Route: 058
     Dates: start: 201705

REACTIONS (1)
  - Death [None]
